FAERS Safety Report 10905859 (Version 1)
Quarter: 2015Q1

REPORT INFORMATION
  Report Type: Report from Study
  Country: US (occurrence: US)
  Receive Date: 20150311
  Receipt Date: 20150311
  Transmission Date: 20150721
  Serious: Yes (Life-Threatening, Hospitalization, Other)
  Sender: FDA-Public Use
  Company Number: US-SA-2013SA096728

PATIENT
  Age: 61 Year
  Sex: Male
  Weight: 77.1 kg

DRUGS (10)
  1. PLAVIX [Suspect]
     Active Substance: CLOPIDOGREL BISULFATE
     Indication: ANTIPLATELET THERAPY
     Dosage: PRE-PROCEDURAL LOADING DOSE
     Route: 048
     Dates: start: 20110217, end: 20110217
  2. COUMADIN [Concomitant]
     Active Substance: WARFARIN SODIUM
  3. COREG [Concomitant]
     Active Substance: CARVEDILOL
  4. PEPCID AC [Concomitant]
     Active Substance: FAMOTIDINE
  5. PLAVIX [Suspect]
     Active Substance: CLOPIDOGREL BISULFATE
     Indication: ANTIPLATELET THERAPY
     Route: 048
     Dates: start: 20110218
  6. METOPROLOL [Concomitant]
     Active Substance: METOPROLOL
  7. LISINOPRIL. [Concomitant]
     Active Substance: LISINOPRIL
  8. ASPIRIN. [Suspect]
     Active Substance: ASPIRIN
     Indication: ANTIPLATELET THERAPY
     Route: 065
     Dates: start: 20110216
  9. BARE METAL STENT [Concomitant]
     Active Substance: UNSPECIFIED INGREDIENT
     Dates: start: 20110217, end: 20110217
  10. CRESTOR [Concomitant]
     Active Substance: ROSUVASTATIN CALCIUM

REACTIONS (2)
  - Cardiogenic shock [Recovered/Resolved with Sequelae]
  - Acute myocardial infarction [Recovered/Resolved with Sequelae]

NARRATIVE: CASE EVENT DATE: 20110611
